FAERS Safety Report 18356385 (Version 5)
Quarter: 2021Q1

REPORT INFORMATION
  Report Type: Report from Study
  Country: FR (occurrence: FR)
  Receive Date: 20201007
  Receipt Date: 20210325
  Transmission Date: 20210419
  Serious: Yes (Death, Life-Threatening, Hospitalization)
  Sender: FDA-Public Use
  Company Number: FR-JNJFOC-20200948049

PATIENT
  Age: 34 Year
  Sex: Female
  Weight: 61 kg

DRUGS (3)
  1. DUROGESIC [Concomitant]
     Active Substance: FENTANYL
     Indication: TUMOUR PAIN
     Route: 062
  2. PECFENT [Concomitant]
     Active Substance: FENTANYL CITRATE
     Indication: TUMOUR PAIN
     Route: 045
  3. TRABECTEDIN [Suspect]
     Active Substance: TRABECTEDIN
     Indication: SYNOVIAL SARCOMA
     Route: 042
     Dates: start: 20200907, end: 20200907

REACTIONS (2)
  - Acute kidney injury [Not Recovered/Not Resolved]
  - Febrile bone marrow aplasia [Fatal]

NARRATIVE: CASE EVENT DATE: 20200911
